FAERS Safety Report 7179687-9 (Version None)
Quarter: 2010Q4

REPORT INFORMATION
  Report Type: 
  Country: None (occurrence: None)
  Receive Date: 20101221
  Receipt Date: 20100914
  Transmission Date: 20110411
  Serious: Yes (Hospitalization)
  Sender: FDA-Public Use
  Company Number: PL-ROCHE-727770

PATIENT
  Age: 30 Year
  Sex: Male

DRUGS (13)
  1. GANCICLOVIR SODIUM [Suspect]
     Indication: CYTOMEGALOVIRUS INFECTION
     Dosage: BIWEEKLY DOSE
     Route: 042
  2. GANCICLOVIR SODIUM [Suspect]
     Route: 042
  3. GANCICLOVIR SODIUM [Suspect]
     Route: 042
  4. GANCICLOVIR SODIUM [Suspect]
     Route: 042
  5. GANCICLOVIR SODIUM [Suspect]
     Route: 042
  6. GANCICLOVIR SODIUM [Suspect]
     Route: 042
  7. GANCICLOVIR SODIUM [Suspect]
     Dosage: TREATMENT FOR RECURRENCE OF CMV LASTED FOR 90 DAYS
     Route: 042
  8. TACROLIMUS [Suspect]
     Indication: IMMUNOSUPPRESSION
     Route: 065
  9. TACROLIMUS [Suspect]
     Dosage: DOSE REDUCED BY 1/3RD
     Route: 065
  10. TACROLIMUS [Suspect]
     Dosage: LOWERED DOSAGE
     Route: 065
  11. MYCOPHENOLATE MOFETIL [Suspect]
     Indication: IMMUNOSUPPRESSION
     Route: 065
  12. MYCOPHENOLATE MOFETIL [Suspect]
     Dosage: DOSE REDUCED BY 1/3RD
     Route: 065
  13. PREDNISONE [Concomitant]

REACTIONS (9)
  - CYTOMEGALOVIRUS INFECTION [None]
  - HEADACHE [None]
  - HYPERTRANSAMINASAEMIA [None]
  - HYPOGAMMAGLOBULINAEMIA [None]
  - LEUKOPENIA [None]
  - NEPHROPATHY TOXIC [None]
  - PYREXIA [None]
  - THROMBOCYTOPENIA [None]
  - THROMBOTIC MICROANGIOPATHY [None]
